FAERS Safety Report 9414707 (Version 1)
Quarter: 2013Q3

REPORT INFORMATION
  Report Type: Spontaneous
  Country: ES (occurrence: None)
  Receive Date: 20130717
  Receipt Date: 20130717
  Transmission Date: 20140515
  Serious: Yes (Congenital Anomaly)
  Sender: FDA-Public Use
  Company Number: POI0581201300008

PATIENT
  Age: 25 Year
  Sex: Female

DRUGS (1)
  1. AZATHIOPRINE [Suspect]
     Indication: CROHN^S DISEASE

REACTIONS (3)
  - Exposure during pregnancy [None]
  - Trisomy 21 [None]
  - Abortion induced [None]
